FAERS Safety Report 9487679 (Version 3)
Quarter: 2014Q3

REPORT INFORMATION
  Report Type: Spontaneous
  Country: US (occurrence: US)
  Receive Date: 20130725
  Receipt Date: 20140724
  Transmission Date: 20150326
  Serious: No
  Sender: FDA-Public Use
  Company Number: US-GLAXOSMITHKLINE-A0871258A

PATIENT
  Sex: Female
  Weight: 95 kg

DRUGS (3)
  1. AVANDIA [Suspect]
     Active Substance: ROSIGLITAZONE MALEATE
     Indication: DIABETES MELLITUS
     Route: 048
     Dates: start: 20011216, end: 2006
  2. AVANDAMET [Suspect]
     Active Substance: METFORMIN HYDROCHLORIDE\ROSIGLITAZONE MALEATE
     Indication: DIABETES MELLITUS
     Route: 048
     Dates: end: 2007
  3. AVAPRO [Concomitant]
     Active Substance: IRBESARTAN

REACTIONS (3)
  - Cardiovascular disorder [Unknown]
  - Diastolic dysfunction [Not Recovered/Not Resolved]
  - Left ventricular hypertrophy [Unknown]
